FAERS Safety Report 23775084 (Version 4)
Quarter: 2024Q2

REPORT INFORMATION
  Report Type: Report from Study
  Country: US (occurrence: US)
  Receive Date: 20240423
  Receipt Date: 20240606
  Transmission Date: 20240716
  Serious: Yes (Hospitalization, Other)
  Sender: FDA-Public Use
  Company Number: US-PFIZER INC-202400071097

PATIENT
  Age: 85 Year
  Sex: Female

DRUGS (5)
  1. IBRANCE [Suspect]
     Active Substance: PALBOCICLIB
     Dosage: ONCE DAILY FOR 3 WEEKS ON, THEN 1 WEEK OFF
     Route: 048
     Dates: start: 20240302
  2. IBRANCE [Suspect]
     Active Substance: PALBOCICLIB
     Dosage: ONCE DAILY FOR 21 DAYS , THEN 7 DAYS OFF
     Route: 048
     Dates: end: 20240503
  3. LETROZOLE [Concomitant]
     Active Substance: LETROZOLE
  4. ATORVASTATIN CALCIUM [Concomitant]
     Active Substance: ATORVASTATIN CALCIUM
  5. FISH OIL [Concomitant]
     Active Substance: FISH OIL

REACTIONS (12)
  - Blood pressure increased [Unknown]
  - Arthritis [Recovering/Resolving]
  - White blood cell count decreased [Not Recovered/Not Resolved]
  - Blood test abnormal [Unknown]
  - Fatigue [Not Recovered/Not Resolved]
  - Nasal congestion [Unknown]
  - Epistaxis [Unknown]
  - Viral infection [Recovering/Resolving]
  - Toothache [Unknown]
  - Swelling face [Unknown]
  - Cough [Recovering/Resolving]
  - Arthritis [Not Recovered/Not Resolved]

NARRATIVE: CASE EVENT DATE: 20240401
